FAERS Safety Report 17520539 (Version 1)
Quarter: 2020Q1

REPORT INFORMATION
  Report Type: Spontaneous
  Country: MX (occurrence: MX)
  Receive Date: 20200309
  Receipt Date: 20200309
  Transmission Date: 20200409
  Serious: Yes (Other)
  Sender: FDA-Public Use
  Company Number: MX-DSJP-DSE-2020-107286AA

PATIENT

DRUGS (1)
  1. OPENVAS CO 40/12,5 MG [Suspect]
     Active Substance: HYDROCHLOROTHIAZIDE\OLMESARTAN MEDOXOMIL
     Indication: HYPERTENSION
     Dosage: 40/12,5 MG, QD
     Route: 048
     Dates: start: 20200211, end: 20200225

REACTIONS (1)
  - Fibromyalgia [Recovered/Resolved]

NARRATIVE: CASE EVENT DATE: 20200218
